FAERS Safety Report 6651476-0 (Version None)
Quarter: 2010Q1

REPORT INFORMATION
  Report Type: 
  Country: None (occurrence: None)
  Receive Date: 20100325
  Receipt Date: 20100316
  Transmission Date: 20100710
  Serious: Yes (Hospitalization)
  Sender: FDA-Public Use
  Company Number: US-JNJFOC-20100305069

PATIENT
  Age: 2 Year
  Sex: Male
  Weight: 12 kg

DRUGS (2)
  1. CHILDREN'S MOTRIN [Suspect]
  2. CHILDREN'S MOTRIN [Suspect]
     Indication: ACCIDENTAL EXPOSURE

REACTIONS (5)
  - HAEMATEMESIS [None]
  - HAEMATOCHEZIA [None]
  - OBSTRUCTION GASTRIC [None]
  - OVERDOSE [None]
  - PYLORIC STENOSIS [None]
